FAERS Safety Report 5093513-3 (Version None)
Quarter: 2006Q3

REPORT INFORMATION
  Report Type: 
  Country: None (occurrence: None)
  Receive Date: 20060829
  Receipt Date: 20060816
  Transmission Date: 20061208
  Serious: Yes (Other)
  Sender: FDA-Public Use
  Company Number: 2006046508

PATIENT
  Sex: Male
  Weight: 116.5744 kg

DRUGS (10)
  1. VIAGRA [Suspect]
     Indication: ERECTILE DYSFUNCTION
     Dosage: 25 MG
     Dates: end: 20051001
  2. ASCORBIC ACID [Concomitant]
  3. METFORMIN [Concomitant]
  4. HYDRAZINE [Concomitant]
  5. HYTRIN [Concomitant]
  6. TARKA [Concomitant]
  7. CADUET [Concomitant]
  8. DEPO-TESTOSTERONE [Concomitant]
  9. MONTELUKAST SODIUM [Concomitant]
  10. ZYRTEC [Concomitant]

REACTIONS (5)
  - CYANOPSIA [None]
  - DEVICE FAILURE [None]
  - DEVICE LEAKAGE [None]
  - DRUG INEFFECTIVE [None]
  - PENILE PROSTHESIS INSERTION [None]
